FAERS Safety Report 23416386 (Version 1)
Quarter: 2024Q1

REPORT INFORMATION
  Report Type: Spontaneous
  Country: FR (occurrence: FR)
  Receive Date: 20240118
  Receipt Date: 20240118
  Transmission Date: 20240409
  Serious: Yes (Life-Threatening, Hospitalization, Other)
  Sender: FDA-Public Use
  Company Number: None

PATIENT
  Age: 73 Year
  Sex: Female
  Weight: 82 kg

DRUGS (6)
  1. PANTOPRAZOLE [Suspect]
     Active Substance: PANTOPRAZOLE
     Indication: Product used for unknown indication
     Dosage: UNK
     Route: 048
     Dates: start: 20230305, end: 20230326
  2. CEFTAZIDIME [Suspect]
     Active Substance: CEFTAZIDIME
     Indication: Pneumonia
     Dosage: UNK
     Route: 042
     Dates: start: 20230325, end: 20230401
  3. CEFTAZIDIME [Suspect]
     Active Substance: CEFTAZIDIME
     Dosage: UNK
     Route: 042
     Dates: start: 20230815, end: 20230817
  4. PIPERACILLIN SODIUM [Suspect]
     Active Substance: PIPERACILLIN SODIUM
     Indication: Pneumonia
     Dosage: UNK
     Route: 042
     Dates: start: 20230313, end: 20230321
  5. LINEZOLID [Suspect]
     Active Substance: LINEZOLID
     Indication: Product used for unknown indication
     Dosage: UNK
     Route: 042
     Dates: start: 20230323, end: 20230425
  6. SPIRAMYCIN [Suspect]
     Active Substance: SPIRAMYCIN
     Indication: Pneumonia
     Dosage: UNK
     Route: 048
     Dates: start: 20230817

REACTIONS (2)
  - Agranulocytosis [Recovered/Resolved]
  - Dermatitis exfoliative generalised [Recovered/Resolved]

NARRATIVE: CASE EVENT DATE: 20230327
